FAERS Safety Report 9722679 (Version 3)
Quarter: 2014Q1

REPORT INFORMATION
  Report Type: Spontaneous
  Country: US (occurrence: US)
  Receive Date: 20131202
  Receipt Date: 20140207
  Transmission Date: 20141002
  Serious: No
  Sender: FDA-Public Use
  Company Number: US-PFIZER INC-2013339750

PATIENT
  Age: 68 Year
  Sex: Female

DRUGS (2)
  1. LIDOCAINE HCL [Suspect]
     Dosage: UNK
  2. CELEXA [Suspect]
     Dosage: UNK

REACTIONS (2)
  - Drug intolerance [Unknown]
  - Drug hypersensitivity [Unknown]
